FAERS Safety Report 6915521-7 (Version None)
Quarter: 2010Q3

REPORT INFORMATION
  Report Type: 
  Country: None (occurrence: None)
  Receive Date: 20100804
  Receipt Date: 20100721
  Transmission Date: 20110219
  Serious: Yes (Other)
  Sender: FDA-Public Use
  Company Number: 7011820

PATIENT
  Age: 64 Year
  Sex: Male
  Weight: 88 kg

DRUGS (2)
  1. REBIF [Suspect]
     Indication: MULTIPLE SCLEROSIS
     Dosage: 44 MCG
     Dates: start: 20090101
  2. STEROIDS (ALL OTHER THERAPEUTIC PRODUCTS) [Suspect]
     Indication: MULTIPLE SCLEROSIS
     Dosage: 1 IN 1 D

REACTIONS (1)
  - DIABETES MELLITUS [None]
